FAERS Safety Report 5888248-0 (Version None)
Quarter: 2008Q3

REPORT INFORMATION
  Report Type: 
  Country: None (occurrence: None)
  Receive Date: 20080918
  Receipt Date: 20080905
  Transmission Date: 20090109
  Serious: Yes (Hospitalization)
  Sender: FDA-Public Use
  Company Number: GB-AMGEN-UK306728

PATIENT
  Sex: Female

DRUGS (11)
  1. PANITUMUMAB [Suspect]
     Dates: start: 20080820
  2. CAPECITABINE [Concomitant]
     Dates: start: 20080820, end: 20080828
  3. FLUCONAZOLE [Concomitant]
  4. SUCRALFATE [Concomitant]
  5. CHLORHEXIDINE GLUCONATE [Concomitant]
  6. METOCLOPRAMIDE [Concomitant]
  7. ONDANSETRON [Concomitant]
  8. SLOW-K [Concomitant]
  9. NEUPOGEN [Concomitant]
  10. EPIRUBICIN [Concomitant]
  11. OXALIPLATIN [Concomitant]

REACTIONS (3)
  - DIARRHOEA [None]
  - NEUTROPENIA [None]
  - URINARY TRACT INFECTION [None]
